FAERS Safety Report 6052816-6 (Version None)
Quarter: 2009Q1

REPORT INFORMATION
  Report Type: 
  Country: None (occurrence: None)
  Receive Date: 20090127
  Receipt Date: 20090115
  Transmission Date: 20090719
  Serious: Yes (Hospitalization, Other)
  Sender: FDA-Public Use
  Company Number: DE-PFIZER INC-2009155807

PATIENT

DRUGS (4)
  1. AMLODIPINE BESILATE [Suspect]
  2. HYDROCHLOROTHIAZIDE [Suspect]
  3. METOPROLOL SUCCINATE [Suspect]
  4. RAMIPRIL [Suspect]

REACTIONS (1)
  - COOMBS POSITIVE HAEMOLYTIC ANAEMIA [None]
